FAERS Safety Report 12314407 (Version 1)
Quarter: 2016Q2

REPORT INFORMATION
  Report Type: Spontaneous
  Country: US (occurrence: US)
  Receive Date: 20160428
  Receipt Date: 20160428
  Transmission Date: 20160815
  Serious: No
  Sender: FDA-Public Use
  Company Number: US-009507513-1604USA008317

PATIENT
  Age: 16 Year
  Sex: Female
  Weight: 65.76 kg

DRUGS (1)
  1. NEXPLANON [Suspect]
     Active Substance: ETONOGESTREL
     Indication: CONTRACEPTION
     Dosage: UNK
     Route: 059
     Dates: start: 20160216

REACTIONS (3)
  - Device kink [Not Recovered/Not Resolved]
  - No adverse event [Unknown]
  - Product quality issue [Unknown]

NARRATIVE: CASE EVENT DATE: 20160411
